FAERS Safety Report 14525695 (Version 2)
Quarter: 2018Q1

REPORT INFORMATION
  Report Type: Spontaneous
  Country: JP (occurrence: JP)
  Receive Date: 20180213
  Receipt Date: 20180309
  Transmission Date: 20180509
  Serious: Yes (Hospitalization, Other)
  Sender: FDA-Public Use
  Company Number: JP-009507513-1707JPN002221J

PATIENT
  Age: 74 Year
  Sex: Male
  Weight: 51 kg

DRUGS (1)
  1. KEYTRUDA [Suspect]
     Active Substance: PEMBROLIZUMAB
     Indication: SQUAMOUS CELL CARCINOMA OF LUNG
     Dosage: 200 MG, Q3W
     Route: 041
     Dates: start: 20170619, end: 20180104

REACTIONS (5)
  - Pneumonia bacterial [Recovered/Resolved]
  - Haemothorax [Recovered/Resolved]
  - Pyrexia [Recovered/Resolved]
  - Pulmonary alveolar haemorrhage [Unknown]
  - Rib fracture [Recovered/Resolved]

NARRATIVE: CASE EVENT DATE: 20170621
